FAERS Safety Report 25141245 (Version 1)
Quarter: 2025Q1

REPORT INFORMATION
  Report Type: Spontaneous
  Country: US (occurrence: None)
  Receive Date: 20250331
  Receipt Date: 20250331
  Transmission Date: 20250409
  Serious: Yes (Hospitalization)
  Sender: FDA-CTU
  Company Number: None

PATIENT
  Sex: Female

DRUGS (11)
  1. XOLAIR [Suspect]
     Active Substance: OMALIZUMAB
     Indication: Asthma
     Route: 058
     Dates: start: 20210312
  2. ANTIVERT TAB 12.5MG [Concomitant]
  3. ATARAX TAB 25MG [Concomitant]
  4. AZITHROMYCIN [Concomitant]
     Active Substance: AZITHROMYCIN
  5. BENADRYL [Concomitant]
     Active Substance: DIPHENHYDRAMINE HYDROCHLORIDE
  6. GALAN SR TAB 120MG [Concomitant]
  7. CICLOPIROX SOL 8% [Concomitant]
  8. CYCLOBENZAPRTAB10MG [Concomitant]
  9. DESYREL TAB 100MG [Concomitant]
  10. FAMOTIDINE TAB 40MG [Concomitant]
  11. FLUTICASONE [Concomitant]
     Active Substance: FLUTICASONE

REACTIONS (1)
  - Hospitalisation [None]
